FAERS Safety Report 7708706-3 (Version None)
Quarter: 2011Q3

REPORT INFORMATION
  Report Type: 
  Country: None (occurrence: None)
  Receive Date: 20110825
  Receipt Date: 20110822
  Transmission Date: 20111222
  Serious: Yes (Other)
  Sender: FDA-Public Use
  Company Number: US-BAYER-2011-076820

PATIENT
  Age: 27 Year
  Sex: Female

DRUGS (1)
  1. YAZ [Suspect]
     Dosage: UNK
     Route: 048
     Dates: start: 20070201, end: 20110301

REACTIONS (4)
  - CEREBRAL THROMBOSIS [None]
  - JUGULAR VEIN THROMBOSIS [None]
  - INJURY [None]
  - INTRACRANIAL PRESSURE INCREASED [None]
